FAERS Safety Report 5195334-X (Version None)
Quarter: 2006Q4

REPORT INFORMATION
  Report Type: 
  Country: None (occurrence: None)
  Receive Date: 20061130
  Receipt Date: 20060906
  Transmission Date: 20070319
  Serious: Yes (Other)
  Sender: FDA-Public Use
  Company Number: WAES 0609USA01079

PATIENT
  Age: 75 Year
  Sex: Female

DRUGS (5)
  1. FOSAMAX [Suspect]
     Indication: OSTEONECROSIS
     Dosage: 70 MG/WKY/PO
     Route: 048
     Dates: end: 20060903
  2. ALEVE [Concomitant]
  3. LIPITOR [Concomitant]
  4. PAXIL [Concomitant]
  5. VERAPAMIL [Concomitant]

REACTIONS (2)
  - HYPERSENSITIVITY [None]
  - RASH [None]
